FAERS Safety Report 22328155 (Version 1)
Quarter: 2023Q2

REPORT INFORMATION
  Report Type: Spontaneous
  Country: CN (occurrence: CN)
  Receive Date: 20230516
  Receipt Date: 20230516
  Transmission Date: 20230722
  Serious: Yes (Other)
  Sender: FDA-Public Use
  Company Number: CN-009507513-2305CHN004513

PATIENT
  Age: 53 Year
  Sex: Male

DRUGS (2)
  1. KEYTRUDA [Suspect]
     Active Substance: PEMBROLIZUMAB
     Indication: Oesophageal squamous cell carcinoma metastatic
     Dosage: 200 MG DOSE 1
     Dates: start: 20211218, end: 20211218
  2. KEYTRUDA [Suspect]
     Active Substance: PEMBROLIZUMAB
     Dosage: 200 MG 2ND CYCLE
     Dates: start: 20220110, end: 20220110

REACTIONS (5)
  - Thrombocytopenia [Unknown]
  - Upper gastrointestinal haemorrhage [Unknown]
  - Haemoptysis [Unknown]
  - Marrow hyperplasia [Unknown]
  - Inappropriate schedule of product administration [Unknown]

NARRATIVE: CASE EVENT DATE: 20220101
